FAERS Safety Report 9973719 (Version 2)
Quarter: 2014Q1

REPORT INFORMATION
  Report Type: Spontaneous
  Country: BR (occurrence: BR)
  Receive Date: 20140306
  Receipt Date: 20140306
  Transmission Date: 20141002
  Serious: Yes (Other)
  Sender: FDA-Public Use
  Company Number: PHHY2014BR017293

PATIENT
  Age: 72 Year
  Sex: Male
  Weight: 88 kg

DRUGS (7)
  1. DIOVAN AMLO FIX [Suspect]
     Indication: HYPERTENSION
     Dosage: 1 DF (320/10MG) IN THE MORNING
     Route: 048
     Dates: start: 20140204, end: 20140211
  2. DIOVAN AMLO FIX [Suspect]
     Dosage: 1 DF (320/10MG) IN THE MORNING
     Route: 048
     Dates: start: 20140218, end: 20140224
  3. SELOZOK [Concomitant]
     Indication: ARRHYTHMIA
     Dosage: 50 MG, IN THE MORNING AND AT AFTERNOON
     Route: 048
  4. ANCORON [Concomitant]
     Indication: ARRHYTHMIA
     Dosage: 200 MG, FROM MONDAYS TO FRIDAYS
  5. ALENIA                             /01538101/ [Concomitant]
     Indication: CHRONIC OBSTRUCTIVE PULMONARY DISEASE
     Dosage: 1 DF, BID
     Route: 055
  6. SPIRIVA [Concomitant]
     Indication: CHRONIC OBSTRUCTIVE PULMONARY DISEASE
     Dosage: 1 DF, QD
     Route: 055
  7. AAS [Concomitant]
     Indication: ARRHYTHMIA
     Dosage: 2 DF, DAILY
     Route: 048

REACTIONS (5)
  - Swelling face [Not Recovered/Not Resolved]
  - Odynophagia [Recovered/Resolved]
  - Urinary retention [Recovering/Resolving]
  - Oedema peripheral [Recovering/Resolving]
  - Oedema [Unknown]
